FAERS Safety Report 7482179-0 (Version None)
Quarter: 2011Q2

REPORT INFORMATION
  Report Type: 
  Country: None (occurrence: None)
  Receive Date: 20110516
  Receipt Date: 20110509
  Transmission Date: 20111010
  Serious: Yes (Death, Other)
  Sender: FDA-Public Use
  Company Number: JP-PFIZER INC-2011098297

PATIENT
  Age: 68 Year
  Sex: Female
  Weight: 40.7 kg

DRUGS (19)
  1. MICOMBI COMBINATION [Concomitant]
     Dosage: UNK
     Route: 048
  2. LOXOPROFEN SODIUM [Concomitant]
     Dosage: 60 MG, 3X/DAY
     Route: 048
  3. OXYCODONE HCL [Concomitant]
     Dosage: 5 MG, 1X/DAY
     Route: 048
  4. LIVALO [Concomitant]
     Dosage: 1 MG, 1X/DAY
     Route: 048
  5. LAXOBERON [Concomitant]
     Dosage: 10 ML, 1X/DAY
     Route: 048
  6. AMLODIPINE BESILATE [Concomitant]
     Dosage: 20 MG, 1X/DAY
     Route: 048
     Dates: start: 20110127
  7. ATELEC [Concomitant]
     Dosage: 10 MG, 1X/DAY
     Route: 048
  8. MIYA BM [Concomitant]
     Dosage: 1 G, 3X/DAY
     Route: 048
  9. RABEPRAZOLE SODIUM [Concomitant]
     Dosage: 1 MG, 1X/DAY
     Route: 048
  10. REBAMIPIDE [Concomitant]
     Dosage: 100 MG, 3X/DAY
     Route: 048
  11. MAGMITT [Concomitant]
     Dosage: 250 MG, 3X/DAY
  12. FENTANYL CITRATE [Concomitant]
     Dosage: 1 MG, 1X/DAY
     Route: 062
  13. POLARAMINE [Concomitant]
     Indication: PROPHYLAXIS
     Dosage: 5 MG, UNK
     Route: 042
     Dates: start: 20110119
  14. TEMSIROLIMUS [Suspect]
     Indication: RENAL CELL CARCINOMA
     Dosage: 25 MG, WEEKLY
     Route: 042
     Dates: start: 20110119, end: 20110309
  15. NAUZELIN [Concomitant]
     Dosage: 60 MG, 1X/DAY
     Route: 054
  16. PREDNISOLONE [Concomitant]
     Dosage: 5 MG, 2X/DAY
     Route: 048
  17. NOVAMIN [Concomitant]
     Dosage: 5 MG, 3X/DAY
     Route: 048
  18. PURSENNID [Concomitant]
     Dosage: 12 MG, 1X/DAY
     Route: 048
  19. FAMOTIDINE [Concomitant]
     Dosage: 20 MG, 1X/DAY
     Route: 048
     Dates: start: 20110127

REACTIONS (4)
  - BLOOD CREATININE INCREASED [None]
  - DEATH [None]
  - RENAL FAILURE ACUTE [None]
  - HYPERGLYCAEMIA [None]
